FAERS Safety Report 20433284 (Version 1)
Quarter: 2022Q1

REPORT INFORMATION
  Report Type: Spontaneous
  Country: US (occurrence: US)
  Receive Date: 20220205
  Receipt Date: 20220205
  Transmission Date: 20220424
  Serious: No
  Sender: FDA-Public Use
  Company Number: US-SANOFI-00954881

PATIENT
  Age: 70 Year
  Sex: Male

DRUGS (1)
  1. JEVTANA [Suspect]
     Active Substance: CABAZITAXEL
     Dosage: UNK UNK, Q3W
     Dates: start: 20211209

REACTIONS (6)
  - Oral discomfort [Unknown]
  - Oral disorder [Unknown]
  - Dysgeusia [Unknown]
  - Pain [Unknown]
  - Muscle spasms [Unknown]
  - Dysgeusia [Unknown]
